FAERS Safety Report 11788828 (Version 1)
Quarter: 2015Q4

REPORT INFORMATION
  Report Type: Spontaneous
  Country: US (occurrence: None)
  Receive Date: 20151130
  Receipt Date: 20151130
  Transmission Date: 20160305
  Serious: Yes (Disabling)
  Sender: FDA-Public Use
  Company Number: None

PATIENT
  Age: 42 Year
  Sex: Female
  Weight: 55.79 kg

DRUGS (6)
  1. VARIOUS SUPPLEMENTS [Concomitant]
  2. LANSOPRAZOLE 40 MG MYLAN [Suspect]
     Active Substance: LANSOPRAZOLE
     Indication: DYSPEPSIA
     Route: 048
     Dates: start: 20150608, end: 20150608
  3. OMEPRAZOLE. [Concomitant]
     Active Substance: OMEPRAZOLE
  4. PROBIOTICS [Concomitant]
     Active Substance: PROBIOTICS NOS
  5. VITAMINS/MINERALS [Concomitant]
  6. GILDESS [Concomitant]
     Active Substance: ETHINYL ESTRADIOL\NORETHINDRONE ACETATE

REACTIONS (4)
  - Irritable bowel syndrome [None]
  - Abdominal pain upper [None]
  - Lactose intolerance [None]
  - Flatulence [None]

NARRATIVE: CASE EVENT DATE: 20150608
